FAERS Safety Report 12575648 (Version 1)
Quarter: 2016Q3

REPORT INFORMATION
  Report Type: Report from Study
  Country: US (occurrence: US)
  Receive Date: 20160720
  Receipt Date: 20160720
  Transmission Date: 20161109
  Serious: Yes (Other)
  Sender: FDA-Public Use
  Company Number: US-MALLINCKRODT-T201603084

PATIENT
  Sex: Male
  Weight: 89 kg

DRUGS (1)
  1. REPOSITORY CORTICOTROPIN INJECTION [Suspect]
     Active Substance: CORTICOTROPIN
     Indication: SARCOIDOSIS
     Dosage: 0.75 ML EVERY 72 HOURS
     Route: 030
     Dates: start: 20160702, end: 20160705

REACTIONS (3)
  - Lipase increased [Unknown]
  - Brain natriuretic peptide abnormal [Unknown]
  - Pancreatitis [Unknown]
